FAERS Safety Report 7763107-7 (Version None)
Quarter: 2011Q3

REPORT INFORMATION
  Report Type: 
  Country: None (occurrence: None)
  Receive Date: 20110920
  Receipt Date: 20110906
  Transmission Date: 20111222
  Serious: Yes (Other)
  Sender: FDA-Public Use
  Company Number: PHHY2010US46503

PATIENT
  Sex: Female

DRUGS (2)
  1. GLEEVEC [Suspect]
     Dosage: 1 DF, DAILY
     Route: 048
     Dates: start: 20110408
  2. GLEEVEC [Suspect]
     Indication: CHRONIC MYELOID LEUKAEMIA
     Dosage: 400 MG, DAILY
     Route: 048
     Dates: start: 20080623

REACTIONS (14)
  - OTORRHOEA [None]
  - DYSPEPSIA [None]
  - VOMITING [None]
  - NAUSEA [None]
  - WEIGHT DECREASED [None]
  - DIARRHOEA [None]
  - PAIN [None]
  - MUSCULOSKELETAL CHEST PAIN [None]
  - LABYRINTHITIS [None]
  - PRURITUS [None]
  - RASH [None]
  - HAEMOGLOBIN DECREASED [None]
  - VERTIGO [None]
  - OEDEMA [None]
